FAERS Safety Report 7291351-4 (Version None)
Quarter: 2011Q1

REPORT INFORMATION
  Report Type: 
  Country: None (occurrence: None)
  Receive Date: 20110214
  Receipt Date: 20110209
  Transmission Date: 20110831
  Serious: Yes (Hospitalization)
  Sender: FDA-Public Use
  Company Number: A0912966A

PATIENT
  Sex: Female

DRUGS (1)
  1. LAMICTAL [Suspect]
     Dosage: 100MG UNKNOWN
     Route: 065
     Dates: start: 20030814

REACTIONS (5)
  - CONVULSION [None]
  - TREATMENT NONCOMPLIANCE [None]
  - CONFUSIONAL STATE [None]
  - POOR QUALITY SLEEP [None]
  - FEAR [None]
